FAERS Safety Report 4767364-0 (Version None)
Quarter: 2005Q3

REPORT INFORMATION
  Report Type: 
  Country: None (occurrence: None)
  Receive Date: 20050913
  Receipt Date: 20050905
  Transmission Date: 20060218
  Serious: Yes (Other)
  Sender: FDA-Public Use
  Company Number: DE-ROCHE-416559

PATIENT
  Age: 27 Year
  Sex: Male
  Weight: 80 kg

DRUGS (2)
  1. PEG-INTERFERON ALFA 2A (RO 25-8310) [Suspect]
     Route: 058
     Dates: start: 20050110, end: 20050811
  2. RIBAVIRIN [Suspect]
     Route: 048
     Dates: start: 20050110, end: 20050811

REACTIONS (1)
  - MENTAL DISORDER [None]
